FAERS Safety Report 7799099-4 (Version None)
Quarter: 2011Q4

REPORT INFORMATION
  Report Type: 
  Country: None (occurrence: None)
  Receive Date: 20111006
  Receipt Date: 20111004
  Transmission Date: 20120403
  Serious: Yes (Other)
  Sender: FDA-Public Use
  Company Number: US-PFIZER INC-2011134219

PATIENT
  Sex: Female
  Weight: 65.76 kg

DRUGS (10)
  1. CHANTIX [Suspect]
     Indication: SMOKING CESSATION THERAPY
     Dosage: 0.5 MG, 1X/DAY
     Route: 048
     Dates: start: 20110605, end: 20110601
  2. VYTORIN [Concomitant]
     Indication: BLOOD CHOLESTEROL DECREASED
     Dosage: UNK
  3. LEVOTHYROXINE [Concomitant]
     Indication: THYROID DISORDER
     Dosage: UNK
  4. VITAMIN D [Concomitant]
     Dosage: UNK
  5. BONIVA [Concomitant]
     Dosage: UNK
  6. CALCIUM [Concomitant]
     Indication: MINERAL SUPPLEMENTATION
     Dosage: UNK
  7. CHANTIX [Suspect]
     Dosage: UNK
     Route: 048
     Dates: start: 20110101
  8. MICARDIS [Concomitant]
     Indication: HYPERTENSION
     Dosage: 40 MG, UNK
  9. CHANTIX [Suspect]
     Dosage: 1 MG, 2X/DAY
     Route: 048
     Dates: start: 20110601
  10. CELEBREX [Concomitant]
     Indication: ARTHROPATHY
     Dosage: UNK

REACTIONS (4)
  - PARANOIA [None]
  - CRYING [None]
  - ANXIETY [None]
  - IRRITABILITY [None]
